FAERS Safety Report 7513321-0 (Version None)
Quarter: 2011Q2

REPORT INFORMATION
  Report Type: 
  Country: None (occurrence: None)
  Receive Date: 20110525
  Receipt Date: 20110525
  Transmission Date: 20111010
  Serious: Yes (Disabling, Other)
  Sender: FDA-Public Use
  Company Number: None

PATIENT
  Age: 59 Year
  Sex: Female
  Weight: 81.6475 kg

DRUGS (1)
  1. LOSARTAN POTASSIUM [Suspect]
     Indication: HYPERTENSION
     Dosage: 50 MG ONCE A DAY MEDCO  LV, NE
     Dates: start: 20100913, end: 20110429

REACTIONS (5)
  - HYPOAESTHESIA [None]
  - RESPIRATORY DISORDER [None]
  - OEDEMA MOUTH [None]
  - LIP SWELLING [None]
  - PARALYSIS [None]
